FAERS Safety Report 15034256 (Version 1)
Quarter: 2018Q2

REPORT INFORMATION
  Report Type: Spontaneous
  Country: DE (occurrence: DE)
  Receive Date: 20180620
  Receipt Date: 20180620
  Transmission Date: 20180711
  Serious: Yes (Hospitalization)
  Sender: FDA-Public Use
  Company Number: DE-TEVA-2018-DE-909477

PATIENT
  Age: 90 Year
  Sex: Female

DRUGS (10)
  1. PROPAFENONE. [Suspect]
     Active Substance: PROPAFENONE
     Dosage: 150 MG, 1-0-1-0
     Route: 065
  2. SIMVASTATIN. [Concomitant]
     Active Substance: SIMVASTATIN
     Dosage: 20 MG, 0-0-1-0
     Route: 065
  3. METOPROLOL. [Concomitant]
     Active Substance: METOPROLOL
     Dosage: 95 MG, 1-0-1-0
     Route: 065
  4. PHENPROCOUMON [Concomitant]
     Active Substance: PHENPROCOUMON
     Dosage: 3 MG, NACH SCHEMA
     Route: 065
  5. DIGITOXIN [Interacting]
     Active Substance: DIGITOXIN
     Dosage: 0.07 MG, DAILY EXCEPT SUNDAY
     Route: 065
  6. DEXBUDESONIDE [Concomitant]
     Dosage: 1-0-1-0, DOSIERAEROSOL
     Route: 055
  7. METAMIZOL [Concomitant]
     Active Substance: METAMIZOLE SODIUM
     Dosage: 25-25-25-0, TROPFEN
     Route: 065
  8. IBUPROFEN. [Concomitant]
     Active Substance: IBUPROFEN
     Dosage: 600 MG, 0-0-1-0
     Route: 065
  9. OMEPRAZOL [Concomitant]
     Active Substance: OMEPRAZOLE
     Dosage: 20 MG, 1-0-0-0
     Route: 065
  10. TRAMADOL. [Concomitant]
     Active Substance: TRAMADOL
     Dosage: 50 MG, 1-0-0-1
     Route: 065

REACTIONS (8)
  - Palpitations [Unknown]
  - Tachycardia [Unknown]
  - Atrial fibrillation [Unknown]
  - Oedema peripheral [Unknown]
  - Therapeutic drug monitoring analysis not performed [Unknown]
  - Labelled drug-drug interaction medication error [Unknown]
  - Medication monitoring error [Unknown]
  - Dyspnoea [Unknown]
